FAERS Safety Report 4267234-0 (Version None)
Quarter: 2004Q1

REPORT INFORMATION
  Report Type: 
  Country: None (occurrence: None)
  Receive Date: 20040107
  Receipt Date: 20031229
  Transmission Date: 20041129
  Serious: Yes (Death)
  Sender: FDA-Public Use
  Company Number: THQ2003A01464

PATIENT
  Age: 41 Year
  Sex: Female

DRUGS (9)
  1. OPIREN         (LANSOPRAZOLE) [Suspect]
     Indication: DIAPHRAGMATIC HERNIA
     Dosage: 15 MG (15 MG,)
     Dates: end: 20031004
  2. NAPROXEN SODIUM [Suspect]
     Indication: ARTHRALGIA
     Dates: end: 20031004
  3. BESITRAN (SERTRALINE HYDROCHLORIDE) [Suspect]
     Indication: DEPRESSION
     Dosage: 100 MG (100 MG,) PER ORAL
     Route: 048
     Dates: start: 20021029, end: 20031004
  4. HIPOARTEL (ENALAPRIL MALEATE) [Suspect]
     Indication: ESSENTIAL HYPERTENSION
     Dates: end: 20031004
  5. BARNIDIPINE HYDROCHLORIDE (BARNIDIPINE HYDROCHLORIDE) [Suspect]
     Indication: ESSENTIAL HYPERTENSION
     Dosage: 10 MG (10 MG,) PER ORAL
     Route: 048
     Dates: start: 20030916, end: 20031004
  6. DOGMATIL (SULPIRIDE) [Suspect]
     Indication: DIZZINESS
     Dates: end: 20031004
  7. LEXATIN (BROMAZEPAM) [Suspect]
     Indication: NEUROSIS
     Dosage: 1.5 MG (1.5 MG,)
     Dates: start: 20021029, end: 20031004
  8. TERMALGIN (PARACETAMOL) [Suspect]
     Indication: ARTHRALGIA
     Dates: end: 20031004
  9. FABROVEN (FABROVEN) [Concomitant]

REACTIONS (5)
  - HAEMATOCRIT DECREASED [None]
  - HEPATIC NECROSIS [None]
  - HEPATIC STEATOSIS [None]
  - HEPATITIS TOXIC [None]
  - PROTEIN TOTAL DECREASED [None]
